FAERS Safety Report 8213656 (Version 4)
Quarter: 2016Q1

REPORT INFORMATION
  Report Type: Report from Study
  Country: US (occurrence: US)
  Receive Date: 20111030
  Receipt Date: 20160328
  Transmission Date: 20160526
  Serious: No
  Sender: FDA-Public Use
  Company Number: US-AMGEN-USASP2011020991

PATIENT
  Age: 42 Year
  Sex: Female
  Weight: 77.55 kg

DRUGS (1)
  1. ENBREL [Suspect]
     Active Substance: ETANERCEPT
     Indication: ANKYLOSING SPONDYLITIS
     Dosage: 50 MG, ONCE WEEK
     Route: 058
     Dates: start: 20130218

REACTIONS (4)
  - Injection site pain [Unknown]
  - Anxiety [Unknown]
  - No therapeutic response [Unknown]
  - Emotional disorder [Unknown]
